FAERS Safety Report 5140472-0 (Version None)
Quarter: 2006Q4

REPORT INFORMATION
  Report Type: 
  Country: None (occurrence: None)
  Receive Date: 20061025
  Receipt Date: 20061025
  Transmission Date: 20070319
  Serious: No
  Sender: FDA-Public Use
  Company Number: None

PATIENT
  Age: 70 Year
  Sex: Male
  Weight: 56.6996 kg

DRUGS (1)
  1. ZOLEDRONIC ACID [Suspect]
     Indication: METASTASES TO BONE
     Dosage: 4 MG EVERY 2 MONTHS IV
     Route: 042
     Dates: start: 20050425, end: 20060525

REACTIONS (3)
  - GASTROINTESTINAL HAEMORRHAGE [None]
  - OSTEONECROSIS [None]
  - TOOTH EXTRACTION [None]
